FAERS Safety Report 4801595-6 (Version None)
Quarter: 2005Q4

REPORT INFORMATION
  Report Type: 
  Country: None (occurrence: None)
  Receive Date: 20051018
  Receipt Date: 20051013
  Transmission Date: 20060501
  Serious: Yes (Life-Threatening, Hospitalization)
  Sender: FDA-Public Use
  Company Number: PHBS2005GB15077

PATIENT
  Sex: Female

DRUGS (5)
  1. BENDROFLUAZIDE [Concomitant]
  2. CIPROFLOXACIN [Concomitant]
  3. GABAPENTIN [Suspect]
     Indication: EPILEPSY
     Dosage: 800 MG/D
     Route: 048
  4. BACLOFEN [Suspect]
     Indication: MUSCLE SPASMS
     Dosage: 40 MG/D
     Route: 048
  5. ZANAFLEX (LIC. ATHENA) [Suspect]
     Indication: MUSCLE SPASMS
     Dosage: 36 MG/D
     Route: 048

REACTIONS (7)
  - BLOOD CREATININE INCREASED [None]
  - CONVULSION [None]
  - DRUG INTERACTION [None]
  - HALLUCINATION [None]
  - LOSS OF CONSCIOUSNESS [None]
  - RENAL FAILURE ACUTE [None]
  - URINARY TRACT INFECTION [None]
